FAERS Safety Report 11652363 (Version 3)
Quarter: 2016Q2

REPORT INFORMATION
  Report Type: Spontaneous
  Country: US (occurrence: US)
  Receive Date: 20151022
  Receipt Date: 20160517
  Transmission Date: 20160815
  Serious: Yes (Other)
  Sender: FDA-Public Use
  Company Number: US-AMGEN-USASP2015109000

PATIENT
  Age: 82 Year
  Sex: Female

DRUGS (1)
  1. PROLIA [Suspect]
     Active Substance: DENOSUMAB
     Indication: OSTEOPOROSIS POSTMENOPAUSAL
     Dosage: UNK
     Route: 065
     Dates: start: 20151009

REACTIONS (23)
  - Rheumatoid arthritis [Unknown]
  - Chronic obstructive pulmonary disease [Unknown]
  - Paraesthesia [Unknown]
  - Activities of daily living impaired [Unknown]
  - Cystitis [Not Recovered/Not Resolved]
  - Back pain [Not Recovered/Not Resolved]
  - Pain in extremity [Not Recovered/Not Resolved]
  - Mobility decreased [Unknown]
  - Ligament sprain [Unknown]
  - Walking aid user [Unknown]
  - Drug hypersensitivity [Unknown]
  - Adverse drug reaction [Not Recovered/Not Resolved]
  - Vomiting projectile [Unknown]
  - Limb discomfort [Unknown]
  - Musculoskeletal pain [Unknown]
  - Joint range of motion decreased [Unknown]
  - Feeling abnormal [Unknown]
  - Contusion [Unknown]
  - Impaired driving ability [Unknown]
  - Feeling of despair [Unknown]
  - Bone pain [Unknown]
  - Pain [Not Recovered/Not Resolved]
  - Myalgia [Unknown]

NARRATIVE: CASE EVENT DATE: 20151011
